FAERS Safety Report 4325513-2 (Version None)
Quarter: 2004Q1

REPORT INFORMATION
  Report Type: 
  Country: None (occurrence: None)
  Receive Date: 20040324
  Receipt Date: 20040304
  Transmission Date: 20041129
  Serious: Yes (Other)
  Sender: FDA-Public Use
  Company Number: USA040361016

PATIENT
  Age: 16 Year
  Sex: Female

DRUGS (4)
  1. STRATTERA [Suspect]
     Dosage: 40 MG/1 DAY
  2. RISPERDAL [Concomitant]
  3. ZOLOFT [Concomitant]
  4. CLONAZEPAM [Concomitant]

REACTIONS (3)
  - DEPRESSED LEVEL OF CONSCIOUSNESS [None]
  - GENERAL PHYSICAL HEALTH DETERIORATION [None]
  - PANIC REACTION [None]
